FAERS Safety Report 5030248-7 (Version None)
Quarter: 2006Q2

REPORT INFORMATION
  Report Type: 
  Country: None (occurrence: None)
  Receive Date: 20060620
  Receipt Date: 20060608
  Transmission Date: 20061013
  Serious: Yes (Hospitalization)
  Sender: FDA-Public Use
  Company Number: DE-ROCHE-450997

PATIENT
  Age: 37 Year
  Sex: Female

DRUGS (3)
  1. ROFERON-A [Suspect]
     Indication: LUNG ADENOCARCINOMA METASTATIC
     Route: 065
     Dates: start: 19980515, end: 19980615
  2. INTRON A [Suspect]
     Indication: LUNG ADENOCARCINOMA METASTATIC
     Route: 065
     Dates: start: 19980315, end: 19980615
  3. SURAMIN [Suspect]
     Indication: LUNG ADENOCARCINOMA METASTATIC
     Route: 065
     Dates: start: 19980315, end: 19980615

REACTIONS (1)
  - GUILLAIN-BARRE SYNDROME [None]
